FAERS Safety Report 7540369-2 (Version None)
Quarter: 2011Q2

REPORT INFORMATION
  Report Type: 
  Country: None (occurrence: None)
  Receive Date: 20110603
  Receipt Date: 20110518
  Transmission Date: 20111010
  Serious: Yes (Hospitalization)
  Sender: FDA-Public Use
  Company Number: 2011MA006056

PATIENT
  Age: 11 Year
  Sex: Male

DRUGS (7)
  1. NEUPOGEN [Concomitant]
  2. BUSULFAN [Concomitant]
  3. HORSE ANTITHYMOCYTE GLOBULIN [Concomitant]
  4. CSP [Concomitant]
  5. PHENYTOIN [Suspect]
     Indication: PROPHYLAXIS
  6. CYCLOPHOSPHAMIDE [Concomitant]
  7. PREDNISONE [Concomitant]

REACTIONS (3)
  - SICKLE CELL ANAEMIA [None]
  - SERUM FERRITIN INCREASED [None]
  - TOXICITY TO VARIOUS AGENTS [None]
